FAERS Safety Report 5218563-5 (Version None)
Quarter: 2007Q1

REPORT INFORMATION
  Report Type: 
  Country: None (occurrence: None)
  Receive Date: 20061130
  Receipt Date: 20060731
  Transmission Date: 20070707
  Serious: Yes (Hospitalization, Other)
  Sender: FDA-Public Use
  Company Number: US200606000831

PATIENT
  Age: 42 Year
  Sex: Female
  Weight: 82.5 kg

DRUGS (6)
  1. ZYPREXA [Suspect]
     Dates: start: 20030701
  2. SEROQUEL [Concomitant]
  3. DEPAKOTE [Concomitant]
  4. LITHIUM CARBONATE [Concomitant]
  5. PROZAC [Concomitant]
  6. REMERON [Concomitant]

REACTIONS (3)
  - DIABETES MELLITUS [None]
  - PANCREATITIS [None]
  - VISION BLURRED [None]
